FAERS Safety Report 8609930-8 (Version None)
Quarter: 2012Q3

REPORT INFORMATION
  Report Type: 
  Country: None (occurrence: None)
  Receive Date: 20120821
  Receipt Date: 20120517
  Transmission Date: 20120928
  Serious: Yes (Other)
  Sender: FDA-Public Use
  Company Number: PHHY2012BR043634

PATIENT
  Age: 37 Year
  Sex: Female

DRUGS (9)
  1. PROGRAF [Concomitant]
     Indication: TRANSPLANT
     Dosage: 1 DF, DAILY
  2. MYFORTIC [Suspect]
     Indication: RENAL AND PANCREAS TRANSPLANT
     Dosage: 2 DF, DAILY
     Route: 048
  3. OMEPRAZOLE [Concomitant]
     Dosage: 1 DF, DAILY
     Route: 048
  4. CALCIUM [Concomitant]
     Indication: OSTEOPENIA
     Dosage: 1 DF, DAILY
     Route: 048
  5. LEVOTHYROXINE SODIUM [Concomitant]
     Indication: HYPOTHYROIDISM
     Dosage: 1 DF, DAILY
     Route: 048
  6. ACYCLOVIR [Concomitant]
     Indication: TRANSPLANT
     Dosage: 1 DF, DAILY
     Route: 048
  7. PREDNISONE TAB [Concomitant]
     Indication: TRANSPLANT
     Dosage: 1 DF, DAILY
     Route: 048
  8. CEPHALEXIN [Concomitant]
     Indication: TRANSPLANT
     Dosage: 1 DF, DAILY
     Route: 048
  9. FLUOXETINE HCL [Concomitant]
     Indication: DEPRESSION
     Dosage: 1 DF, DAILY
     Route: 048

REACTIONS (4)
  - NAUSEA [None]
  - ABDOMINAL DISCOMFORT [None]
  - COMPLICATIONS OF TRANSPLANTED PANCREAS [None]
  - DIZZINESS [None]
